FAERS Safety Report 5527754-5 (Version None)
Quarter: 2007Q4

REPORT INFORMATION
  Report Type: 
  Country: None (occurrence: None)
  Receive Date: 20071123
  Receipt Date: 20071109
  Transmission Date: 20080405
  Serious: Yes (Death, Hospitalization)
  Sender: FDA-Public Use
  Company Number: 2007-05046

PATIENT
  Age: 72 Year
  Sex: Male

DRUGS (5)
  1. PROPRANOLOL [Suspect]
     Indication: ATRIAL FIBRILLATION
     Dosage: 20 MG, SINGLE, ORAL
     Route: 048
     Dates: start: 20051115
  2. PROPRANOLOL [Suspect]
     Indication: HYPERTHYROIDISM
     Dosage: 20 MG, SINGLE, ORAL
     Route: 048
     Dates: start: 20051115
  3. PROPYLTHIOURACIL [Concomitant]
  4. HYDROCORTISONE [Concomitant]
  5. CEFTRIAXONE [Concomitant]

REACTIONS (3)
  - CARDIAC ARREST [None]
  - CIRCULATORY COLLAPSE [None]
  - SINUS BRADYCARDIA [None]
